FAERS Safety Report 25230048 (Version 1)
Quarter: 2025Q2

REPORT INFORMATION
  Report Type: Spontaneous
  Country: JP (occurrence: JP)
  Receive Date: 20250423
  Receipt Date: 20250423
  Transmission Date: 20250716
  Serious: Yes (Other)
  Sender: CHATTEM
  Company Number: JP-SA-2025SA109876

PATIENT
  Age: 43 Year
  Sex: Male

DRUGS (1)
  1. FEXOFENADINE HYDROCHLORIDE [Suspect]
     Active Substance: FEXOFENADINE HYDROCHLORIDE
     Indication: Rhinitis allergic
     Dosage: 2 DF, QD
     Route: 048
     Dates: start: 20250306

REACTIONS (3)
  - Urethral stenosis [Unknown]
  - Dysuria [Unknown]
  - Inappropriate schedule of product administration [Unknown]

NARRATIVE: CASE EVENT DATE: 20250306
